FAERS Safety Report 19791307 (Version 1)
Quarter: 2021Q3

REPORT INFORMATION
  Report Type: Spontaneous
  Country: US (occurrence: US)
  Receive Date: 20210906
  Receipt Date: 20210906
  Transmission Date: 20211014
  Serious: No
  Sender: FDA-Public Use
  Company Number: US-JIANGSU HENGRUI MEDICINE CO., LTD.-2118018

PATIENT
  Age: 51 Year
  Sex: Female
  Weight: 76.2 kg

DRUGS (4)
  1. DOCETAXEL INJECTION USP, 20 MG/1 ML, 80 MG/4 ML, AND 160 MG/8 ML (20 M [Suspect]
     Active Substance: DOCETAXEL
     Dates: start: 20210615
  2. CARBOPLATIN. [Suspect]
     Active Substance: CARBOPLATIN
     Dates: start: 20210615
  3. TRASTUZUMAB. [Suspect]
     Active Substance: TRASTUZUMAB
     Dates: start: 20210615
  4. PERTUZUMAB. [Suspect]
     Active Substance: PERTUZUMAB
     Dates: start: 20210615

REACTIONS (3)
  - Vomiting [Recovered/Resolved]
  - Hypersensitivity [Recovering/Resolving]
  - Nausea [Recovered/Resolved]

NARRATIVE: CASE EVENT DATE: 20210706
